FAERS Safety Report 4337150-4 (Version None)
Quarter: 2004Q1

REPORT INFORMATION
  Report Type: 
  Country: None (occurrence: None)
  Receive Date: 20040329
  Receipt Date: 20040214
  Transmission Date: 20041129
  Serious: No
  Sender: FDA-Public Use
  Company Number: USA040259599

PATIENT
  Age: 8 Year
  Sex: Male
  Weight: 26 kg

DRUGS (3)
  1. STRATTERA [Suspect]
     Indication: ATTENTION DEFICIT/HYPERACTIVITY DISORDER
     Dosage: 25 MG/DAY
     Dates: start: 20040121
  2. DEPAKOTE [Concomitant]
  3. FLONASE [Concomitant]

REACTIONS (3)
  - CRYING [None]
  - MOOD SWINGS [None]
  - SOMNOLENCE [None]
